FAERS Safety Report 8924346 (Version 2)
Quarter: 2012Q4

REPORT INFORMATION
  Report Type: 
  Country: BE (occurrence: BE)
  Receive Date: 20121126
  Receipt Date: 20121205
  Transmission Date: 20130627
  Serious: Yes (Life-Threatening, Hospitalization, Other)
  Sender: FDA-Public Use
  Company Number: BE-GLAXOSMITHKLINE-B0846762A

PATIENT
  Age: 70 Year
  Sex: Male

DRUGS (4)
  1. COMBODART [Suspect]
     Indication: BENIGN PROSTATIC HYPERPLASIA
     Route: 065
     Dates: start: 20120914
  2. BISOPROLOL [Concomitant]
     Dosage: 15MG per day
  3. ADALAT OROS [Concomitant]
     Indication: HYPERTENSION
     Dosage: 10MG Per day
  4. CO-APROVEL [Concomitant]
     Indication: HYPERTENSION

REACTIONS (3)
  - Infarction [Recovering/Resolving]
  - Acute coronary syndrome [Recovering/Resolving]
  - Chest pain [Recovering/Resolving]
